FAERS Safety Report 15137275 (Version 2)
Quarter: 2018Q3

REPORT INFORMATION
  Report Type: Spontaneous
  Country: US (occurrence: US)
  Receive Date: 20180712
  Receipt Date: 20180726
  Transmission Date: 20181010
  Serious: Yes (Other)
  Sender: FDA-Public Use
  Company Number: US-VIFOR (INTERNATIONAL) INC.-VIT-2018-06690

PATIENT
  Sex: Female

DRUGS (15)
  1. DILTIAZEM HYDROCHLORIDE. [Concomitant]
     Active Substance: DILTIAZEM HYDROCHLORIDE
  2. DEPAKOTE [Concomitant]
     Active Substance: DIVALPROEX SODIUM
  3. LANTUS [Concomitant]
     Active Substance: INSULIN GLARGINE
  4. VELTASSA [Suspect]
     Active Substance: PATIROMER
     Indication: HYPERKALAEMIA
     Route: 048
     Dates: start: 20160217
  5. TYLENOL [Concomitant]
     Active Substance: ACETAMINOPHEN
  6. NOVOLOG [Concomitant]
     Active Substance: INSULIN ASPART
  7. CRESTOR [Concomitant]
     Active Substance: ROSUVASTATIN CALCIUM
  8. LISINOPRIL. [Concomitant]
     Active Substance: LISINOPRIL
  9. XARELTO [Concomitant]
     Active Substance: RIVAROXABAN
  10. FISH OIL [Concomitant]
     Active Substance: FISH OIL
  11. JANUVIA [Concomitant]
     Active Substance: SITAGLIPTIN PHOSPHATE
  12. FERROUS GLUCONATE [Concomitant]
     Active Substance: FERROUS GLUCONATE
  13. ALLOPURINOL. [Concomitant]
     Active Substance: ALLOPURINOL
  14. LEVEMIR [Concomitant]
     Active Substance: INSULIN DETEMIR
  15. ATENOLOL. [Concomitant]
     Active Substance: ATENOLOL

REACTIONS (3)
  - Intentional dose omission [Not Recovered/Not Resolved]
  - Malaise [Unknown]
  - Atrial flutter [Unknown]
